FAERS Safety Report 18631834 (Version 1)
Quarter: 2020Q4

REPORT INFORMATION
  Report Type: Spontaneous
  Country: JP (occurrence: JP)
  Receive Date: 20201217
  Receipt Date: 20201217
  Transmission Date: 20210114
  Serious: Yes (Other)
  Sender: FDA-Public Use
  Company Number: JP-BAXTER-2020BAX025645

PATIENT
  Age: 59 Year
  Sex: Female

DRUGS (25)
  1. RITUXAN [Suspect]
     Active Substance: RITUXIMAB
     Dosage: 2ND AND 3RD CYCLE OF R-CHOP THERAPY
     Route: 041
  2. ADRIACIN [Suspect]
     Active Substance: DOXORUBICIN HYDROCHLORIDE
     Dosage: FORTH CYCLE OF R-CHOP THERAPY
     Route: 041
     Dates: start: 20200413, end: 20200413
  3. PREDONINE [Suspect]
     Active Substance: PREDNISOLONE
     Dosage: FORTH CYCLE OF R-CHOP THERAPY
     Route: 048
     Dates: start: 20200413, end: 20200420
  4. VINCRISTINE SULFATE. [Concomitant]
     Active Substance: VINCRISTINE SULFATE
     Indication: PROPHYLAXIS
     Route: 065
  5. ENDOXAN 1G [Suspect]
     Active Substance: CYCLOPHOSPHAMIDE
     Dosage: 2ND AND 3RD CYCLE OF R-CHOP
     Route: 041
  6. ADRIACIN [Suspect]
     Active Substance: DOXORUBICIN HYDROCHLORIDE
     Dosage: FIFTH CYCLE OF R-CHOP THERAPY
     Route: 041
     Dates: start: 20200511
  7. BAKTAR [Concomitant]
     Active Substance: SULFAMETHOXAZOLE\TRIMETHOPRIM
     Indication: PROPHYLAXIS
     Route: 065
  8. PANTETHINE [Concomitant]
     Active Substance: PANTETHINE
     Indication: PROPHYLAXIS
     Route: 065
  9. ENDOXAN 1G [Suspect]
     Active Substance: CYCLOPHOSPHAMIDE
     Dosage: FIFTH CYCLE OF R-CHOP THERAPY
     Route: 041
     Dates: start: 20200511
  10. VINCRISTINE SULFATE. [Suspect]
     Active Substance: VINCRISTINE SULFATE
     Dosage: SECOND CYCLE OF R-CHOP
     Route: 065
  11. ADRIACIN [Suspect]
     Active Substance: DOXORUBICIN HYDROCHLORIDE
     Indication: DIFFUSE LARGE B-CELL LYMPHOMA
     Dosage: FIRST CYCLE OF R-CHOP
     Route: 041
     Dates: start: 20200127
  12. PREDONINE [Suspect]
     Active Substance: PREDNISOLONE
     Dosage: 2ND AND 3RD CYCLE OF R-CHOP
     Route: 048
  13. RITUXAN [Suspect]
     Active Substance: RITUXIMAB
     Dosage: FORTH CYCLE OF R-CHOP THERAPY
     Route: 041
     Dates: start: 20200413
  14. VINCRISTINE SULFATE. [Suspect]
     Active Substance: VINCRISTINE SULFATE
     Indication: DIFFUSE LARGE B-CELL LYMPHOMA
     Dosage: FIRST CYCLE OF R-CHOP
     Route: 065
     Dates: start: 20200127
  15. MAGMITT [Concomitant]
     Active Substance: MAGNESIUM OXIDE
     Indication: PROPHYLAXIS
     Route: 065
  16. URSODEOXYCHOLIC ACID [Concomitant]
     Active Substance: URSODIOL
     Indication: PROPHYLAXIS
     Route: 065
  17. ENDOXAN 1G [Suspect]
     Active Substance: CYCLOPHOSPHAMIDE
     Dosage: 4TH CYCLE OF R-CHOP
     Route: 041
     Dates: start: 20200413
  18. RITUXAN [Suspect]
     Active Substance: RITUXIMAB
     Indication: DIFFUSE LARGE B-CELL LYMPHOMA
     Dosage: FIRST CYCLE OF R-CHOP
     Route: 041
     Dates: start: 20200127
  19. RITUXAN [Suspect]
     Active Substance: RITUXIMAB
     Dosage: FIFTH CYCLE OF R-CHOP THERAPY
     Route: 041
     Dates: start: 20200511
  20. PREDONINE [Suspect]
     Active Substance: PREDNISOLONE
     Indication: DIFFUSE LARGE B-CELL LYMPHOMA
     Dosage: FIRST CYCLE OF R-CHOP
     Route: 048
     Dates: start: 20200127
  21. ENDOXAN 1G [Suspect]
     Active Substance: CYCLOPHOSPHAMIDE
     Indication: DIFFUSE LARGE B-CELL LYMPHOMA
     Dosage: FIRST CYCLE OF R-CHOP
     Route: 041
     Dates: start: 20200127
  22. ADRIACIN [Suspect]
     Active Substance: DOXORUBICIN HYDROCHLORIDE
     Dosage: 2NDAND3RD CYCLES OF R-CHOP THERAPY
     Route: 041
  23. PREDONINE [Suspect]
     Active Substance: PREDNISOLONE
     Dosage: FIFTH CYCLE OF R-CHOP THERAPY
     Route: 048
     Dates: start: 20200511, end: 20200515
  24. NEXIUM [Concomitant]
     Active Substance: ESOMEPRAZOLE MAGNESIUM
     Indication: PROPHYLAXIS
     Route: 065
  25. ROSUVASTATIN CALCIUM. [Concomitant]
     Active Substance: ROSUVASTATIN CALCIUM
     Indication: PROPHYLAXIS
     Route: 065

REACTIONS (3)
  - Joint ankylosis [Unknown]
  - Seizure [Not Recovered/Not Resolved]
  - Epilepsy [Not Recovered/Not Resolved]

NARRATIVE: CASE EVENT DATE: 20200414
